FAERS Safety Report 5771413-0 (Version None)
Quarter: 2008Q2

REPORT INFORMATION
  Report Type: 
  Country: None (occurrence: None)
  Receive Date: 20080613
  Receipt Date: 20080605
  Transmission Date: 20081010
  Serious: Yes (Hospitalization, Disabling)
  Sender: FDA-Public Use
  Company Number: GB-TEVA-172421ISR

PATIENT
  Age: 61 Year
  Sex: Male
  Weight: 89.7 kg

DRUGS (4)
  1. CISPLATIN [Suspect]
     Indication: OESOPHAGEAL CARCINOMA
     Route: 042
     Dates: start: 20071219, end: 20071219
  2. CISPLATIN [Suspect]
     Indication: GASTRIC CANCER
  3. EPIRUBICIN [Suspect]
     Indication: GASTRIC CANCER
     Route: 040
     Dates: start: 20071219, end: 20071219
  4. CAPECITABINE [Suspect]
     Indication: GASTRIC CANCER
     Route: 048
     Dates: start: 20071220, end: 20080101

REACTIONS (3)
  - BLOOD GLUCOSE INCREASED [None]
  - HYPERGLYCAEMIC HYPEROSMOLAR NONKETOTIC SYNDROME [None]
  - PERIPHERAL ISCHAEMIA [None]
